FAERS Safety Report 7436846-5 (Version None)
Quarter: 2011Q2

REPORT INFORMATION
  Report Type: 
  Country: None (occurrence: None)
  Receive Date: 20110426
  Receipt Date: 20110422
  Transmission Date: 20111010
  Serious: No
  Sender: FDA-Public Use
  Company Number: US-PFIZER INC-2011087984

PATIENT
  Age: 5 Year
  Sex: Male
  Weight: 16.7 kg

DRUGS (2)
  1. CHILDREN'S ADVIL [Suspect]
     Indication: NASOPHARYNGITIS
     Dosage: ONE TEASPOON, UNK
     Route: 065
     Dates: start: 20110408, end: 20110408
  2. CHILDREN'S ADVIL [Suspect]
     Indication: HYPERSENSITIVITY

REACTIONS (1)
  - ABDOMINAL PAIN UPPER [None]
